FAERS Safety Report 24881911 (Version 1)
Quarter: 2025Q1

REPORT INFORMATION
  Report Type: Report from Study
  Country: US (occurrence: US)
  Receive Date: 20250124
  Receipt Date: 20250124
  Transmission Date: 20250409
  Serious: Yes (Other)
  Sender: ABBVIE
  Company Number: US-ABBVIE-6096218

PATIENT
  Age: 79 Year
  Sex: Female

DRUGS (1)
  1. SKYRIZI [Suspect]
     Active Substance: RISANKIZUMAB-RZAA
     Indication: Product used for unknown indication
     Route: 058
     Dates: start: 20230918

REACTIONS (6)
  - Cerebrovascular accident [Unknown]
  - Hip fracture [Recovering/Resolving]
  - Nasopharyngitis [Recovered/Resolved]
  - Unevaluable event [Unknown]
  - Nervous system disorder [Unknown]
  - Compression fracture [Unknown]

NARRATIVE: CASE EVENT DATE: 20240501
